FAERS Safety Report 23087689 (Version 3)
Quarter: 2024Q4

REPORT INFORMATION
  Report Type: Spontaneous
  Country: US (occurrence: US)
  Receive Date: 20231020
  Receipt Date: 20241203
  Transmission Date: 20250114
  Serious: Yes (Life-Threatening, Hospitalization, Other)
  Sender: AUROBINDO
  Company Number: US-MLMSERVICE-20231005-4591098-1

PATIENT
  Age: 45 Year
  Sex: Male

DRUGS (14)
  1. AMITRIPTYLINE [Interacting]
     Active Substance: AMITRIPTYLINE
     Indication: Antidepressant therapy
     Dosage: UNK
     Route: 065
  2. AMITRIPTYLINE [Interacting]
     Active Substance: AMITRIPTYLINE
     Indication: Drug use disorder
     Dosage: 75 MILLIGRAM, ONCE A DAY
     Route: 065
  3. PREGABALIN [Interacting]
     Active Substance: PREGABALIN
     Indication: Antidepressant therapy
     Dosage: UNK
     Route: 065
  4. PREGABALIN [Interacting]
     Active Substance: PREGABALIN
     Indication: Drug use disorder
     Dosage: 200 MILLIGRAM, TWO TIMES A DAY
     Route: 065
  5. BUPRENORPHINE AND NALOXONE [Suspect]
     Active Substance: BUPRENORPHINE HYDROCHLORIDE\NALOXONE HYDROCHLORIDE
     Indication: Drug use disorder
     Dosage: 16 MG/4 MG DAILY
     Route: 065
  6. FENTANYL [Interacting]
     Active Substance: FENTANYL
     Indication: Analgesic therapy
     Dosage: UNK (DRIP)
     Route: 065
  7. FENTANYL [Interacting]
     Active Substance: FENTANYL
     Indication: Sedation
     Dosage: 2 MICROGRAM/KILOGRAM, ONCE A DAY
     Route: 042
  8. FENTANYL [Interacting]
     Active Substance: FENTANYL
     Dosage: 0.7 MICROGRAM/KILOGRAM [DOSES ADJUSTED TO MAINTAIN RICHMOND AGITATION-SEDATION SCALE (RASS) AT ?4, R
     Route: 042
  9. FENTANYL [Interacting]
     Active Substance: FENTANYL
     Dosage: 1 MICROGRAM/KILOGRAM [DOSES ADJUSTED TO MAINTAIN RICHMOND AGITATION-SEDATION SCALE (RASS) AT ?4, RAN
     Route: 042
  10. SUBOXONE [Interacting]
     Active Substance: BUPRENORPHINE HYDROCHLORIDE\NALOXONE HYDROCHLORIDE
     Indication: Drug use disorder
     Dosage: 16 MG/4 MG DAILY
     Route: 065
  11. PROPOFOL [Concomitant]
     Active Substance: PROPOFOL
     Indication: Sedation
     Dosage: 3 MICROGRAM/KILOGRAM (1 HOUR) [DOSES ADJUSTED TO MAINTAIN RICHMOND AGITATION-SEDATION SCALE (RASS) A
     Route: 065
  12. PROPOFOL [Concomitant]
     Active Substance: PROPOFOL
     Dosage: 1 MICROGRAM/KILOGRAM [DOSES ADJUSTED TO MAINTAIN RICHMOND AGITATION-SEDATION SCALE (RASS) AT ?4, RAN
     Route: 065
  13. CEFTRIAXONE [Concomitant]
     Active Substance: CEFTRIAXONE
     Indication: Sedation
     Dosage: 1 GRAM
     Route: 042
  14. AZITHROMYCIN [Concomitant]
     Active Substance: AZITHROMYCIN
     Indication: Sedation
     Dosage: 500 GRAM
     Route: 048

REACTIONS (3)
  - Mental status changes [Recovering/Resolving]
  - Serotonin syndrome [Recovered/Resolved]
  - Drug interaction [Recovering/Resolving]
